FAERS Safety Report 18010992 (Version 3)
Quarter: 2020Q3

REPORT INFORMATION
  Report Type: Spontaneous
  Country: PL (occurrence: PL)
  Receive Date: 20200710
  Receipt Date: 20200728
  Transmission Date: 20201103
  Serious: Yes (Other)
  Sender: FDA-Public Use
  Company Number: NVSC2020PL193284

PATIENT
  Age: 47 Year
  Sex: Female

DRUGS (8)
  1. LEVOTHYROXINE SODIUM. [Suspect]
     Active Substance: LEVOTHYROXINE SODIUM
     Indication: BASEDOW^S DISEASE
     Route: 065
  2. CYCLOSPORINE. [Suspect]
     Active Substance: CYCLOSPORINE
     Indication: ENDOCRINE OPHTHALMOPATHY
     Dosage: UNK
     Route: 065
  3. METHYLPREDNISOLONE. [Suspect]
     Active Substance: METHYLPREDNISOLONE
     Dosage: 125 MG AS PRE?TREATMENT WITH ANTITHYMOCYTE?GLOBULIN
     Route: 065
  4. CLEMASTINE [Concomitant]
     Active Substance: CLEMASTINE
     Indication: ENDOCRINE OPHTHALMOPATHY
     Dosage: AS PRE?TREATMENT WITH ANTITHYMOCYTE?GLOBULIN
     Route: 065
  5. METHYLPREDNISOLONE. [Suspect]
     Active Substance: METHYLPREDNISOLONE
     Indication: ENDOCRINE OPHTHALMOPATHY
     Dosage: 11 G
     Route: 065
  6. METHYLPREDNISOLONE. [Suspect]
     Active Substance: METHYLPREDNISOLONE
     Dosage: 250 MG AS PRE?TREATMENT WITH ANTITHYMOCYTE?GLOBULIN
     Route: 065
  7. PARACETAMOL [Concomitant]
     Active Substance: ACETAMINOPHEN
     Indication: ENDOCRINE OPHTHALMOPATHY
     Dosage: AS PRE?TREATMENT WITH ANTITHYMOCYTE?GLOBULIN
     Route: 065
  8. TIMOGLOBULINA [Suspect]
     Active Substance: LAPINE T-LYMPHOCYTE IMMUNE GLOBULIN
     Indication: ENDOCRINE OPHTHALMOPATHY
     Dosage: 1.5 MG/KG TWO DOSES
     Route: 065
     Dates: start: 201807

REACTIONS (3)
  - Drug ineffective [Unknown]
  - Product use in unapproved indication [Unknown]
  - Off label use [Unknown]
